FAERS Safety Report 11992352 (Version 1)
Quarter: 2016Q1

REPORT INFORMATION
  Report Type: Spontaneous
  Country: US (occurrence: None)
  Receive Date: 20160202
  Receipt Date: 20160202
  Transmission Date: 20160526
  Serious: No
  Sender: FDA-Public Use
  Company Number: None

PATIENT
  Age: 28 Year
  Sex: Male
  Weight: 72.58 kg

DRUGS (6)
  1. IBUPROFEN. [Concomitant]
     Active Substance: IBUPROFEN
  2. FLUOXETINE [Concomitant]
     Active Substance: FLUOXETINE HYDROCHLORIDE
  3. HYDROXYZINE PAMOATE 25 MG WATSON [Suspect]
     Active Substance: HYDROXYZINE PAMOATE
     Indication: ANXIETY
     Route: 048
     Dates: start: 20160114, end: 20160201
  4. TRAZODONE [Concomitant]
     Active Substance: TRAZODONE HYDROCHLORIDE
  5. RISPERIDONE. [Concomitant]
     Active Substance: RISPERIDONE
  6. ALBUTEROL INHALER [Concomitant]
     Active Substance: ALBUTEROL

REACTIONS (3)
  - Drug withdrawal syndrome [None]
  - Sleep terror [None]
  - Anxiety [None]

NARRATIVE: CASE EVENT DATE: 20160121
